FAERS Safety Report 13062531 (Version 1)
Quarter: 2016Q4

REPORT INFORMATION
  Report Type: Spontaneous
  Country: US (occurrence: US)
  Receive Date: 20161226
  Receipt Date: 20161226
  Transmission Date: 20170207
  Serious: Yes (Other)
  Sender: FDA-Public Use
  Company Number: US-LUNDBECK-DKLU2024380

PATIENT
  Age: 9 Month
  Sex: Male
  Weight: 9 kg

DRUGS (1)
  1. SABRIL [Suspect]
     Active Substance: VIGABATRIN
     Indication: PRODUCT USED FOR UNKNOWN INDICATION
     Dosage: EXCEEDING THE MAXIMUM DOSE OF?150 MG/DAY
     Route: 065
     Dates: start: 201611

REACTIONS (5)
  - Gastrointestinal tube insertion [Unknown]
  - Drug ineffective [Unknown]
  - Drug administration error [Unknown]
  - Weight decreased [Unknown]
  - Prescribed overdose [Unknown]

NARRATIVE: CASE EVENT DATE: 201612
